FAERS Safety Report 24445918 (Version 1)
Quarter: 2024Q4

REPORT INFORMATION
  Report Type: Spontaneous
  Country: US (occurrence: None)
  Receive Date: 20241016
  Receipt Date: 20241016
  Transmission Date: 20250115
  Serious: Yes (Hospitalization)
  Sender: Public
  Company Number: None

PATIENT
  Age: 29 Year
  Sex: Female

DRUGS (11)
  1. TRANEXAMIC ACID [Suspect]
     Active Substance: TRANEXAMIC ACID
     Indication: Haemoptysis
     Dosage: FREQUENCY : 3 TIMES A DAY;?
     Route: 048
     Dates: start: 20220330
  2. IALBUTEROL [Concomitant]
  3. AZITHROMYCIN [Concomitant]
     Active Substance: AZITHROMYCIN
  4. CAYSTON [Concomitant]
     Active Substance: AZTREONAM
  5. CREON [Concomitant]
     Active Substance: PANCRELIPASE AMYLASE\PANCRELIPASE LIPASE\PANCRELIPASE PROTEASE
  6. KEPPRA [Concomitant]
     Active Substance: LEVETIRACETAM
  7. LANTUS [Concomitant]
     Active Substance: INSULIN GLARGINE
  8. PULMOZYME [Concomitant]
     Active Substance: DORNASE ALFA
  9. TOBRAMYCI N [Concomitant]
  10. VITAMIN A [Concomitant]
     Active Substance: VITAMIN A
  11. VITAMIN C [Concomitant]
     Active Substance: ASCORBIC ACID

REACTIONS (1)
  - Influenza [None]

NARRATIVE: CASE EVENT DATE: 20240907
